FAERS Safety Report 17292170 (Version 1)
Quarter: 2020Q1

REPORT INFORMATION
  Report Type: Report from Study
  Country: FR (occurrence: FR)
  Receive Date: 20200121
  Receipt Date: 20200121
  Transmission Date: 20200409
  Serious: Yes (Hospitalization)
  Sender: FDA-Public Use
  Company Number: FR-ROCHE-2524484

PATIENT
  Age: 82 Year
  Sex: Female

DRUGS (13)
  1. DOCETAXEL. [Suspect]
     Active Substance: DOCETAXEL
     Indication: ANAL SQUAMOUS CELL CARCINOMA
     Dosage: MOST RECENT DOSE: 10/DEC/2019
     Route: 065
     Dates: start: 20191210
  2. ASPEGIC [ACETYLSALICYLATE LYSINE] [Concomitant]
     Active Substance: ASPIRIN DL-LYSINE
  3. 5-FLUOROURACIL [FLUOROURACIL] [Suspect]
     Active Substance: FLUOROURACIL
     Indication: ANAL SQUAMOUS CELL CARCINOMA
     Route: 065
     Dates: start: 20191210
  4. EMEND [Concomitant]
     Active Substance: APREPITANT
  5. METFORMINE [METFORMIN] [Concomitant]
     Active Substance: METFORMIN HYDROCHLORIDE
  6. IMODIUM [Concomitant]
     Active Substance: LOPERAMIDE HYDROCHLORIDE
  7. ZOPHREN [ONDANSETRON] [Concomitant]
     Active Substance: ONDANSETRON
  8. DOLIPRANE [Concomitant]
     Active Substance: ACETAMINOPHEN
  9. CISPLATIN. [Suspect]
     Active Substance: CISPLATIN
     Indication: ANAL SQUAMOUS CELL CARCINOMA
     Route: 065
     Dates: start: 20191210
  10. APROVEL [Concomitant]
     Active Substance: IRBESARTAN
  11. ATORVASTATINE [ATORVASTATIN] [Concomitant]
     Active Substance: ATORVASTATIN
  12. ATEZOLIZUMAB. [Suspect]
     Active Substance: ATEZOLIZUMAB
     Indication: ANAL SQUAMOUS CELL CARCINOMA
     Route: 065
     Dates: start: 20191223
  13. VOGALENE [Concomitant]
     Active Substance: METOPIMAZINE

REACTIONS (3)
  - Chills [Recovered/Resolved]
  - Infusion related reaction [Recovered/Resolved]
  - Hypertension [Recovered/Resolved]

NARRATIVE: CASE EVENT DATE: 20191223
